FAERS Safety Report 8329051-1 (Version None)
Quarter: 2012Q2

REPORT INFORMATION
  Report Type: 
  Country: None (occurrence: None)
  Receive Date: 20120430
  Receipt Date: 20120413
  Transmission Date: 20120825
  Serious: Yes (Other)
  Sender: FDA-Public Use
  Company Number: 2012MA004873

PATIENT
  Age: 43 Year
  Sex: Male

DRUGS (3)
  1. DILANTIN [Concomitant]
  2. PHENYTOIN [Suspect]
     Indication: CONVULSION
     Dosage: 400 MG;QD
  3. PHENOBARBITAL TAB [Concomitant]

REACTIONS (3)
  - ANXIETY [None]
  - IMPAIRED DRIVING ABILITY [None]
  - CONVULSION [None]
